FAERS Safety Report 5555355-1 (Version None)
Quarter: 2007Q4

REPORT INFORMATION
  Report Type: 
  Country: None (occurrence: None)
  Receive Date: 20071213
  Receipt Date: 20070816
  Transmission Date: 20080405
  Serious: No
  Sender: FDA-Public Use
  Company Number: US-AMGEN-KDL207528

PATIENT
  Sex: Female

DRUGS (10)
  1. ENBREL [Suspect]
     Indication: RHEUMATOID ARTHRITIS
     Route: 058
     Dates: start: 20060116
  2. METHOTREXATE [Concomitant]
     Dates: start: 20060515
  3. PLAQUENIL [Concomitant]
     Dates: start: 19960608
  4. LEUCOVORIN CALCIUM [Concomitant]
     Dates: start: 20060116
  5. MEDROL [Concomitant]
     Dates: start: 20061214
  6. VITAMIN CAP [Concomitant]
     Dates: start: 19970204
  7. ORUVAIL [Concomitant]
     Dates: start: 20051221
  8. SOMA [Concomitant]
  9. ULTRACET [Concomitant]
     Dates: start: 20011219
  10. ZOLOFT [Concomitant]

REACTIONS (2)
  - DRUG ADMINISTERED AT INAPPROPRIATE SITE [None]
  - UPPER RESPIRATORY TRACT INFECTION [None]
